FAERS Safety Report 8988940 (Version 1)
Quarter: 2012Q4

REPORT INFORMATION
  Report Type: Spontaneous
  Country: US (occurrence: None)
  Receive Date: 20121224
  Receipt Date: 20121224
  Transmission Date: 20130627
  Serious: Yes (Death)
  Sender: FDA-Public Use
  Company Number: None

PATIENT
  Age: 73 Year
  Sex: Male
  Weight: 12.3 kg

DRUGS (1)
  1. DECITABINE [Suspect]
     Indication: CHRONIC MYELOMONOCYTIC LEUKEMIA
     Dosage: 16.48mg 2x/wk, subq inj
     Route: 058

REACTIONS (1)
  - Pyrexia [None]
